FAERS Safety Report 8340875-7 (Version None)
Quarter: 2012Q1

REPORT INFORMATION
  Report Type: 
  Country: None (occurrence: None)
  Receive Date: 20120330
  Receipt Date: 20110602
  Transmission Date: 20120608
  Serious: Yes (Hospitalization, Disabling)
  Sender: FDA-Public Use
  Company Number: 918945

PATIENT
  Sex: Male

DRUGS (4)
  1. HEPARIN SODIUM INJECTION [Suspect]
     Indication: PRODUCT USED FOR UNKNOWN INDICATION
     Dosage: NOT REPORTED, NOT REPORTED, UNKNOWN
     Route: 042
     Dates: start: 20090201, end: 20090201
  2. HEPARIN SODIUM INJECTION [Suspect]
     Indication: PRODUCT USED FOR UNKNOWN INDICATION
     Dosage: NOT REPORTED, NOT REPORTED, UNKNOWN
     Route: 042
     Dates: start: 20090201, end: 20090201
  3. HEPARIN [Suspect]
     Indication: PRODUCT USED FOR UNKNOWN INDICATION
     Dosage: NOT REPORTED, NOT REPORTED, UNKNOWN
     Route: 042
     Dates: start: 20090201, end: 20090201
  4. HEPARIN SODIUM INJECTION [Suspect]
     Indication: PRODUCT USED FOR UNKNOWN INDICATION
     Dosage: NOT REPORTED, NOT REPORTED, UNKNOWN
     Route: 042
     Dates: start: 20090201, end: 20090201

REACTIONS (2)
  - HEPARIN-INDUCED THROMBOCYTOPENIA [None]
  - INJURY [None]
